FAERS Safety Report 5429195-8 (Version None)
Quarter: 2007Q3

REPORT INFORMATION
  Report Type: 
  Country: None (occurrence: None)
  Receive Date: 20070829
  Receipt Date: 20070823
  Transmission Date: 20080115
  Serious: Yes (Hospitalization)
  Sender: FDA-Public Use
  Company Number: IT-BAYER-200714932GDS

PATIENT
  Age: 57 Year
  Sex: Female

DRUGS (3)
  1. CIPROXIN [Suspect]
     Indication: FISTULA
     Route: 048
     Dates: start: 20070724, end: 20070804
  2. PARACETAMOL [Suspect]
     Indication: PYREXIA
     Route: 048
     Dates: start: 20070803, end: 20070803
  3. VANCOCINA A.P. [Suspect]
     Indication: FISTULA
     Route: 030
     Dates: start: 20070724, end: 20070804

REACTIONS (1)
  - DERMATITIS BULLOUS [None]
